FAERS Safety Report 21533840 (Version 3)
Quarter: 2022Q4

REPORT INFORMATION
  Report Type: Report from Study
  Country: US (occurrence: US)
  Receive Date: 20221101
  Receipt Date: 20221130
  Transmission Date: 20230113
  Serious: No
  Sender: FDA-Public Use
  Company Number: US-DSJP-DSU-2022-138971AA

PATIENT
  Sex: Female

DRUGS (4)
  1. PEXIDARTINIB [Suspect]
     Active Substance: PEXIDARTINIB
     Indication: Giant cell tumour of tendon sheath
     Dosage: 200MG EVERY MORNING AND 400MG EVERY EVENING
     Route: 048
     Dates: start: 20221018, end: 202210
  2. PEXIDARTINIB [Suspect]
     Active Substance: PEXIDARTINIB
     Dosage: ONE CAPSULE TWICE DAILY
     Route: 048
     Dates: start: 202210, end: 20221031
  3. PEXIDARTINIB [Suspect]
     Active Substance: PEXIDARTINIB
     Dosage: 400 MG, BID
     Route: 048
     Dates: start: 20221018
  4. PEXIDARTINIB [Suspect]
     Active Substance: PEXIDARTINIB
     Dosage: 200 MG, QD
     Route: 048
     Dates: start: 2022, end: 2022

REACTIONS (10)
  - Headache [Not Recovered/Not Resolved]
  - Fatigue [Not Recovered/Not Resolved]
  - Nausea [Not Recovered/Not Resolved]
  - Vision blurred [Recovered/Resolved]
  - Feeling abnormal [Not Recovered/Not Resolved]
  - Abdominal discomfort [Not Recovered/Not Resolved]
  - Disturbance in attention [Not Recovered/Not Resolved]
  - Constipation [Not Recovered/Not Resolved]
  - Alanine aminotransferase increased [Not Recovered/Not Resolved]
  - Vision blurred [Not Recovered/Not Resolved]

NARRATIVE: CASE EVENT DATE: 20220101
